FAERS Safety Report 23191928 (Version 1)
Quarter: 2023Q4

REPORT INFORMATION
  Report Type: Spontaneous
  Country: US (occurrence: None)
  Receive Date: 20231116
  Receipt Date: 20231116
  Transmission Date: 20240110
  Serious: Yes (Death)
  Sender: FDA-Public Use
  Company Number: None

PATIENT
  Age: 78 Year
  Sex: Female

DRUGS (1)
  1. BOTOX [Suspect]
     Active Substance: ONABOTULINUMTOXINA
     Dosage: OTHER QUANTITY : 300 UNITS;?OTHER FREQUENCY : EVERY 90 DAYS;?
     Dates: start: 20220227

REACTIONS (1)
  - Death [None]

NARRATIVE: CASE EVENT DATE: 20231114
